FAERS Safety Report 16337641 (Version 1)
Quarter: 2019Q2

REPORT INFORMATION
  Report Type: Report from Study
  Country: CA (occurrence: CA)
  Receive Date: 20190521
  Receipt Date: 20190521
  Transmission Date: 20190711
  Serious: Yes (Other)
  Sender: FDA-Public Use
  Company Number: PHHY2017CA158096

PATIENT
  Sex: Male

DRUGS (1)
  1. VOTRIENT [Suspect]
     Active Substance: PAZOPANIB HYDROCHLORIDE
     Indication: RENAL CELL CARCINOMA
     Dosage: 800 MG, QD
     Route: 048
     Dates: start: 20171016

REACTIONS (7)
  - Hair colour changes [Unknown]
  - Photosensitivity reaction [Unknown]
  - Drug ineffective [Unknown]
  - Nausea [Unknown]
  - Lymphadenopathy [Unknown]
  - Malaise [Unknown]
  - Tooth injury [Not Recovered/Not Resolved]
